FAERS Safety Report 19143901 (Version 2)
Quarter: 2021Q2

REPORT INFORMATION
  Report Type: Report from Study
  Country: CA (occurrence: CA)
  Receive Date: 20210416
  Receipt Date: 20210527
  Transmission Date: 20210717
  Serious: No
  Sender: FDA-Public Use
  Company Number: CA-SA-2021SA122674

PATIENT
  Age: 7 Year
  Sex: Male

DRUGS (5)
  1. ATARAX [ALPRAZOLAM] [Concomitant]
     Active Substance: ALPRAZOLAM
  2. MUPIROCIN. [Concomitant]
     Active Substance: MUPIROCIN
  3. PIMECROLIMUS. [Concomitant]
     Active Substance: PIMECROLIMUS
  4. DUPILUMAB [Suspect]
     Active Substance: DUPILUMAB
     Indication: DERMATITIS ATOPIC
     Dosage: 300 MG, QOW
     Route: 058
     Dates: start: 20210329
  5. MOMETASONE [Concomitant]
     Active Substance: MOMETASONE

REACTIONS (1)
  - Injection site pain [Recovering/Resolving]

NARRATIVE: CASE EVENT DATE: 2021
